FAERS Safety Report 5070210-1 (Version None)
Quarter: 2006Q3

REPORT INFORMATION
  Report Type: 
  Country: None (occurrence: None)
  Receive Date: 20060803
  Receipt Date: 20060518
  Transmission Date: 20061208
  Serious: Yes (Life-Threatening, Hospitalization)
  Sender: FDA-Public Use
  Company Number: DK-NOVOPROD-253453

PATIENT
  Age: 46 Year
  Sex: Male
  Weight: 128 kg

DRUGS (17)
  1. INSULATARD FLEXPEN HM(GE) [Suspect]
     Indication: INSULIN-REQUIRING TYPE II DIABETES MELLITUS
     Dosage: 70 IU, QD
     Route: 058
     Dates: start: 20030701, end: 20030924
  2. BLINDED [Concomitant]
     Indication: INSULIN-REQUIRING TYPE II DIABETES MELLITUS
     Dosage: 1 TAB, BID
     Route: 048
     Dates: start: 20030701, end: 20030924
  3. BLINDED [Concomitant]
     Dosage: 2 TAB, BID
     Route: 048
     Dates: start: 20030701, end: 20030924
  4. ZOCOR [Concomitant]
     Indication: HYPERCHOLESTEROLAEMIA
     Dosage: 10 MG, QD
     Dates: start: 20000810
  5. ZOLOFT                             /01011401/ [Concomitant]
     Indication: DEPRESSION
     Dosage: 100 MG, QD
     Dates: start: 20010701
  6. CORODIL [Concomitant]
     Indication: ALBUMINURIA
     Dosage: 40 MG, QD
     Dates: start: 19951001
  7. PLAVIX [Concomitant]
     Indication: THROMBOSIS PROPHYLAXIS
     Dosage: 75 MG, QD
     Dates: start: 20010601
  8. COMBIVENT                          /01033501/ [Concomitant]
     Indication: ASTHMA
     Dosage: 1 PUFF, BID
     Route: 055
     Dates: start: 20030301
  9. BRICANYL                           /00199202/ [Concomitant]
     Indication: ASTHMA
     Dosage: UNK, PRN
     Dates: start: 20021101
  10. FORTAMOL [Concomitant]
     Indication: PAIN
     Dosage: 100 MG, PRN, MAX X3
     Dates: start: 20010601
  11. DICILLIN [Concomitant]
     Indication: LOCALISED INFECTION
     Dosage: 500 MG, TID
     Dates: start: 20030519, end: 20030609
  12. DICILLIN [Concomitant]
     Dosage: 1500 MG, QD
     Dates: start: 20030826, end: 20030829
  13. PONDOCILLIN                        /00272501/ [Concomitant]
     Indication: LOCALISED INFECTION
     Dosage: 1500 MG, QD
     Dates: start: 20030830, end: 20030830
  14. ERYCIN [Concomitant]
     Indication: LOCALISED INFECTION
     Dosage: 1500 MG, QD
     Dates: start: 20030831, end: 20030929
  15. MAGNYL                             /00002701/ [Concomitant]
     Indication: ANGINA PECTORIS
     Dosage: 300 MG, QD
     Dates: start: 20030913, end: 20030913
  16. NITROGLYCERIN [Concomitant]
     Indication: ANGINA PECTORIS
     Dosage: .5 MG, QD
     Dates: start: 20030913, end: 20030913
  17. MORFIN                             /00036301/ [Concomitant]
     Dosage: 5 MG, QD
     Dates: start: 20030913, end: 20030913

REACTIONS (2)
  - HYPOGLYCAEMIA [None]
  - NEPHROPATHY [None]
